FAERS Safety Report 9266975 (Version 1)
Quarter: 2013Q2

REPORT INFORMATION
  Report Type: Spontaneous
  Country: US (occurrence: US)
  Receive Date: 20130502
  Receipt Date: 20130502
  Transmission Date: 20140414
  Serious: No
  Sender: FDA-Public Use
  Company Number: US-PFIZER INC-2013133400

PATIENT
  Age: 68 Year
  Sex: Female
  Weight: 86.17 kg

DRUGS (1)
  1. LEVOXYL [Suspect]
     Indication: HYPOTHYROIDISM
     Dosage: 0.125 UG, UNK
     Route: 048
     Dates: end: 20130424

REACTIONS (6)
  - Product quality issue [Unknown]
  - Thyroid function test abnormal [Unknown]
  - Weight increased [Unknown]
  - Muscular weakness [Unknown]
  - Fatigue [Unknown]
  - Dysphonia [Unknown]
